FAERS Safety Report 4819021-X (Version None)
Quarter: 2005Q4

REPORT INFORMATION
  Report Type: 
  Country: None (occurrence: None)
  Receive Date: 20051101
  Receipt Date: 20051019
  Transmission Date: 20060501
  Serious: Yes (Life-Threatening, Hospitalization)
  Sender: FDA-Public Use
  Company Number: 2005145946

PATIENT
  Age: 44 Year
  Sex: Female

DRUGS (8)
  1. ZELDOX (CAPSULES) (ZIPRASIDONE) [Suspect]
     Indication: SCHIZOAFFECTIVE DISORDER
     Dosage: 160 MG (2 IN 1 D), ORAL
     Route: 048
     Dates: start: 20050902, end: 20050922
  2. GLADEM (SERTRALINE) [Suspect]
     Indication: SCHIZOAFFECTIVE DISORDER
     Dosage: 50 MG, ORAL
     Route: 048
     Dates: end: 20050927
  3. LORAZEPAM [Concomitant]
  4. LAMICTAL [Suspect]
     Indication: ILL-DEFINED DISORDER
     Dosage: 200 MG, ORAL
     Route: 048
  5. TRAZODONE HCL [Suspect]
     Indication: SCHIZOAFFECTIVE DISORDER
     Dosage: 150 MG, ORAL
     Route: 048
     Dates: end: 20050926
  6. VOLTAREN [Suspect]
     Indication: RADICULOPATHY
     Dosage: 200 MG (1 IN 1 D),ORAL
     Route: 048
     Dates: start: 20050916, end: 20050927
  7. NEODOLPASSE (DICLOFENAC SODIUM, ORPHENADRINE CITRATE) [Suspect]
     Indication: RADICULOPATHY
     Dosage: 250 ML (1 IN 1 D), INTRAVENOUS
     Route: 042
     Dates: start: 20050919, end: 20050921
  8. LORAZEPAM [Concomitant]

REACTIONS (5)
  - ANXIETY [None]
  - CONDITION AGGRAVATED [None]
  - DISORIENTATION [None]
  - LUMBAR RADICULOPATHY [None]
  - PSYCHOTIC DISORDER [None]
